FAERS Safety Report 23194129 (Version 2)
Quarter: 2023Q4

REPORT INFORMATION
  Report Type: Spontaneous
  Country: US (occurrence: US)
  Receive Date: 20231117
  Receipt Date: 20231129
  Transmission Date: 20240109
  Serious: Yes (Other)
  Sender: FDA-Public Use
  Company Number: US-Accord-390942

PATIENT
  Age: 26 Day
  Sex: Female
  Weight: 0.98 kg

DRUGS (3)
  1. LEVETIRACETAM [Suspect]
     Active Substance: LEVETIRACETAM
     Indication: Neonatal seizure
     Route: 042
  2. PHENYTOIN [Suspect]
     Active Substance: PHENYTOIN
     Indication: Neonatal seizure
     Route: 042
  3. PHENOBARBITAL [Suspect]
     Active Substance: PHENOBARBITAL
     Indication: Neonatal seizure
     Route: 042

REACTIONS (3)
  - Electrolyte imbalance [Unknown]
  - Intraventricular haemorrhage neonatal [Unknown]
  - Off label use [Unknown]
